FAERS Safety Report 26116630 (Version 2)
Quarter: 2025Q4

REPORT INFORMATION
  Report Type: Spontaneous
  Country: EU (occurrence: EU)
  Receive Date: 20251203
  Receipt Date: 20251209
  Transmission Date: 20260117
  Serious: Yes (Death, Other)
  Sender: AMGEN
  Company Number: EU-AMGEN-DEUSP2025238268

PATIENT
  Age: 35 Year
  Sex: Male

DRUGS (1)
  1. PROCYSBI [Suspect]
     Active Substance: CYSTEAMINE BITARTRATE
     Indication: Cystinosis
     Dosage: UNK
     Route: 065

REACTIONS (10)
  - Death [Fatal]
  - Brain herniation [Unknown]
  - Cerebrovascular accident [Recovered/Resolved]
  - Post procedural stroke [Recovered/Resolved]
  - Epilepsy [Recovered/Resolved]
  - Subdural haematoma [Unknown]
  - Renal disorder [Recovered/Resolved]
  - Ill-defined disorder [Recovered/Resolved]
  - Vasculitis [Not Recovered/Not Resolved]
  - Treatment noncompliance [Not Recovered/Not Resolved]

NARRATIVE: CASE EVENT DATE: 20080101
